FAERS Safety Report 15125035 (Version 1)
Quarter: 2018Q3

REPORT INFORMATION
  Report Type: Spontaneous
  Country: US (occurrence: US)
  Receive Date: 20180707
  Receipt Date: 20180707
  Transmission Date: 20181010
  Serious: Yes (Disabling)
  Sender: FDA-Public Use
  Company Number: None

PATIENT
  Age: 26 Year
  Sex: Male
  Weight: 80.55 kg

DRUGS (1)
  1. CAROLINA KRATOM RED JONGKONG 100 GRAM POWDER [Suspect]
     Active Substance: MITRAGYNINE\HERBALS
     Route: 048
     Dates: start: 20180629, end: 20180702

REACTIONS (4)
  - Dehydration [None]
  - Vomiting [None]
  - Malaise [None]
  - Dizziness [None]

NARRATIVE: CASE EVENT DATE: 20180702
